FAERS Safety Report 18643147 (Version 1)
Quarter: 2020Q4

REPORT INFORMATION
  Report Type: Spontaneous
  Country: US (occurrence: US)
  Receive Date: 20201221
  Receipt Date: 20201221
  Transmission Date: 20210114
  Serious: Yes (Other)
  Sender: FDA-Public Use
  Company Number: None

PATIENT
  Age: 49 Year
  Sex: Female
  Weight: 86.7 kg

DRUGS (1)
  1. BAMLANIVIMAB. [Suspect]
     Active Substance: BAMLANIVIMAB
     Indication: COVID-19
     Dosage: ?          OTHER FREQUENCY:ONCE;?
     Route: 042
     Dates: start: 20201127, end: 20201127

REACTIONS (8)
  - Dry skin [None]
  - Oral mucosal exfoliation [None]
  - Food allergy [None]
  - Anaphylactic reaction [None]
  - Skin disorder [None]
  - Dysphagia [None]
  - Allergy to plants [None]
  - Dry mouth [None]

NARRATIVE: CASE EVENT DATE: 20201209
